FAERS Safety Report 5612295-7 (Version None)
Quarter: 2008Q1

REPORT INFORMATION
  Report Type: 
  Country: None (occurrence: None)
  Receive Date: 20080201
  Receipt Date: 20080201
  Transmission Date: 20080703
  Serious: Yes (Hospitalization)
  Sender: FDA-Public Use
  Company Number: None

PATIENT
  Sex: Male
  Weight: 67 kg

DRUGS (3)
  1. CISPLATIN [Suspect]
     Dosage: 110 MG  55MG X TWO DOSES
  2. ERBITUX [Suspect]
     Dosage: 1380 MG  460MG X THREE DOSES
  3. CAMPTOSAR [Suspect]
     Dosage: 240 MG  120MG X TWO DOSES

REACTIONS (2)
  - DRUG TOXICITY [None]
  - PULMONARY EMBOLISM [None]
